FAERS Safety Report 10273107 (Version 3)
Quarter: 2014Q3

REPORT INFORMATION
  Report Type: Report from Study
  Country: JP (occurrence: JP)
  Receive Date: 20140702
  Receipt Date: 20140903
  Transmission Date: 20150326
  Serious: Yes (Other)
  Sender: FDA-Public Use
  Company Number: PHHY2013JP107682

PATIENT
  Age: 42 Year
  Sex: Male

DRUGS (44)
  1. CLOZARIL [Suspect]
     Active Substance: CLOZAPINE
     Dosage: 150 MG, DAILY
     Route: 048
     Dates: start: 20120308, end: 20120311
  2. RISPERIDONE. [Concomitant]
     Active Substance: RISPERIDONE
     Dosage: 4 MG, UNK
     Route: 048
  3. OLANZAPINE. [Concomitant]
     Active Substance: OLANZAPINE
     Dosage: 20 MG, UNK
     Route: 048
  4. BETHANECHOL CHLORIDE. [Concomitant]
     Active Substance: BETHANECHOL CHLORIDE
     Dosage: 600 MG, UNK
     Route: 048
     Dates: end: 20120725
  5. FERROUS SULFATE [Concomitant]
     Active Substance: FERROUS SULFATE\FERROUS SULFATE, DRIED
     Dosage: 105 MG, UNK
     Route: 048
     Dates: start: 20120126, end: 20120417
  6. LAC-B [Concomitant]
     Active Substance: BIFIDOBACTERIUM SPP.
     Dosage: 3000 MG, UNK
     Route: 048
     Dates: start: 20120523, end: 20120725
  7. CLOZARIL [Suspect]
     Active Substance: CLOZAPINE
     Dosage: 200 MG, DAILY
     Route: 048
     Dates: start: 20120315, end: 20120317
  8. CARBAMAZEPINE SANDOZ [Suspect]
     Active Substance: CARBAMAZEPINE
     Dosage: 200 MG, DAILY
     Dates: start: 20120405, end: 20120411
  9. QUETIAPINE [Concomitant]
     Active Substance: QUETIAPINE
     Dosage: 600 MG, UNK
     Route: 048
  10. CLOZARIL [Suspect]
     Active Substance: CLOZAPINE
     Dosage: 75 MG,DAILY
     Route: 048
     Dates: start: 20120227, end: 20120229
  11. CLOZARIL [Suspect]
     Active Substance: CLOZAPINE
     Dosage: 125 MG, DAILY
     Route: 048
     Dates: start: 20120305, end: 20120307
  12. CLOZARIL [Suspect]
     Active Substance: CLOZAPINE
     Dosage: 375 MG, DAILY
     Route: 048
     Dates: start: 20120510, end: 20120516
  13. OLANZAPINE. [Concomitant]
     Active Substance: OLANZAPINE
     Dosage: 5 MG, UNK
     Route: 048
     Dates: end: 20120311
  14. LITHIUM CARBONATE. [Concomitant]
     Active Substance: LITHIUM CARBONATE
     Dosage: 600 MG, UNK
     Route: 048
  15. PANTETHINE [Concomitant]
     Active Substance: PANTETHINE
     Dosage: 600 MG, UNK
     Route: 048
     Dates: end: 20120725
  16. CLOZARIL [Suspect]
     Active Substance: CLOZAPINE
     Dosage: 300 MG, DAILY
     Route: 048
     Dates: start: 20120419, end: 20120425
  17. CARBAMAZEPINE SANDOZ [Suspect]
     Active Substance: CARBAMAZEPINE
     Indication: SCHIZOPHRENIA, PARANOID TYPE
     Dosage: 600 MG, DAILY
     Route: 048
     Dates: start: 20120308, end: 20120327
  18. RISPERIDONE. [Concomitant]
     Active Substance: RISPERIDONE
     Dosage: 3 MG, UNK
     Route: 048
  19. OLANZAPINE. [Concomitant]
     Active Substance: OLANZAPINE
     Dosage: 30 MG, UNK
     Route: 048
  20. QUAZEPAM. [Concomitant]
     Active Substance: QUAZEPAM
     Indication: SCHIZOPHRENIA, PARANOID TYPE
     Dosage: 15 MG, UNK
     Route: 048
     Dates: end: 20120328
  21. YOKUKANSAN [Concomitant]
     Active Substance: HERBALS
     Route: 048
     Dates: start: 20120810
  22. CLOZARIL [Suspect]
     Active Substance: CLOZAPINE
     Dosage: 175 MG, DAILY
     Route: 048
     Dates: start: 20120312, end: 20120314
  23. RISPERIDONE. [Concomitant]
     Active Substance: RISPERIDONE
     Dosage: 4 MG, UNK
     Route: 048
  24. RISPERIDONE. [Concomitant]
     Active Substance: RISPERIDONE
     Dosage: 2 MG, UNK
     Route: 048
     Dates: end: 20120321
  25. OLANZAPINE. [Concomitant]
     Active Substance: OLANZAPINE
     Dosage: 15 MG, UNK
     Route: 048
  26. LITHIUM CARBONATE. [Concomitant]
     Active Substance: LITHIUM CARBONATE
     Indication: SCHIZOPHRENIA, PARANOID TYPE
     Dosage: 600 MG, UNK
     Route: 048
     Dates: start: 20080607
  27. PANTETHINE [Concomitant]
     Active Substance: PANTETHINE
     Dosage: 600 MG, UNK
     Route: 048
  28. BETHANECHOL CHLORIDE. [Concomitant]
     Active Substance: BETHANECHOL CHLORIDE
     Dosage: 150 MG, UNK
     Route: 048
     Dates: start: 20120412
  29. CLOZARIL [Suspect]
     Active Substance: CLOZAPINE
     Indication: SCHIZOPHRENIA, PARANOID TYPE
     Dosage: 12.5 MG, DAILY
     Route: 048
     Dates: start: 20120222, end: 20120222
  30. CLOZARIL [Suspect]
     Active Substance: CLOZAPINE
     Dosage: 25 MG, DAILY
     Route: 048
     Dates: start: 20120223, end: 20120224
  31. CLOZARIL [Suspect]
     Active Substance: CLOZAPINE
     Dosage: 225 MG, DAILY
     Route: 048
     Dates: start: 20120318, end: 20120321
  32. CLOZARIL [Suspect]
     Active Substance: CLOZAPINE
     Dosage: 250 MG, DAILY
     Route: 048
     Dates: start: 20120322, end: 20120411
  33. CLOZARIL [Suspect]
     Active Substance: CLOZAPINE
     Dosage: 275 MG,DAILY
     Route: 048
     Dates: start: 20120412, end: 20120418
  34. CLOZARIL [Suspect]
     Active Substance: CLOZAPINE
     Dosage: 325 MG, DAILY
     Route: 048
     Dates: start: 20120426, end: 20120502
  35. CLOZARIL [Suspect]
     Active Substance: CLOZAPINE
     Dosage: 350 MG, DAILY
     Route: 048
     Dates: start: 20120503, end: 20120509
  36. CLOZARIL [Suspect]
     Active Substance: CLOZAPINE
     Dosage: 400 MG, DAILY
     Route: 048
     Dates: start: 20120517
  37. OLANZAPINE. [Concomitant]
     Active Substance: OLANZAPINE
     Dosage: 10 MG, UNK
     Route: 048
  38. CLOZARIL [Suspect]
     Active Substance: CLOZAPINE
     Dosage: 50 MG, DAILY
     Route: 048
     Dates: start: 20120225, end: 20120226
  39. CARBAMAZEPINE SANDOZ [Suspect]
     Active Substance: CARBAMAZEPINE
     Dosage: 400 MG, DAILY
     Route: 048
     Dates: start: 20120328, end: 20120404
  40. RISPERIDONE. [Concomitant]
     Active Substance: RISPERIDONE
     Dosage: 6 MG, UNK
     Route: 048
  41. PANTETHINE [Concomitant]
     Active Substance: PANTETHINE
     Dosage: 960 MG, UNK
     Route: 048
  42. CLOZARIL [Suspect]
     Active Substance: CLOZAPINE
     Dosage: 100 MG, DAILY
     Route: 048
     Dates: start: 20120301, end: 20120304
  43. HALOPERIDOL. [Concomitant]
     Active Substance: HALOPERIDOL
     Dosage: 15 MG, UNK
     Route: 048
  44. OLANZAPINE. [Concomitant]
     Active Substance: OLANZAPINE
     Dosage: 20 MG, UNK
     Route: 048

REACTIONS (9)
  - Salivary hypersecretion [Recovering/Resolving]
  - Platelet count decreased [Unknown]
  - Generalised tonic-clonic seizure [Recovered/Resolved]
  - Vomiting [Recovering/Resolving]
  - Monocyte percentage increased [Unknown]
  - White blood cell count increased [Unknown]
  - Nausea [Recovering/Resolving]
  - Red blood cell count decreased [Unknown]
  - Heart rate increased [Unknown]

NARRATIVE: CASE EVENT DATE: 2012
